FAERS Safety Report 13262845 (Version 1)
Quarter: 2017Q1

REPORT INFORMATION
  Report Type: Spontaneous
  Country: US (occurrence: US)
  Receive Date: 20170223
  Receipt Date: 20170223
  Transmission Date: 20170428
  Serious: No
  Sender: FDA-Public Use
  Company Number: US-JNJFOC-20160909812

PATIENT
  Age: 17 Year
  Sex: Female
  Weight: 100.25 kg

DRUGS (11)
  1. LATUDA [Concomitant]
     Active Substance: LURASIDONE HYDROCHLORIDE
     Indication: PSYCHOTIC DISORDER
     Dosage: EVERY MORNING
     Route: 048
     Dates: start: 20160814
  2. INVEGA SUSTENNA [Suspect]
     Active Substance: PALIPERIDONE PALMITATE
     Indication: AGITATION
     Route: 030
     Dates: start: 20141124
  3. LATUDA [Concomitant]
     Active Substance: LURASIDONE HYDROCHLORIDE
     Indication: PSYCHOTIC DISORDER
     Dosage: EVERY AFTERNOON OR EVENING
     Route: 048
     Dates: start: 20160325
  4. LAMOTRIGINE. [Concomitant]
     Active Substance: LAMOTRIGINE
     Indication: DRUG THERAPY
     Dosage: EVERY MORNING
     Route: 048
     Dates: start: 20160908
  5. LAMOTRIGINE. [Concomitant]
     Active Substance: LAMOTRIGINE
     Indication: DRUG THERAPY
     Dosage: EVERY MORNING
     Route: 048
     Dates: start: 20140811
  6. VYVANSE [Concomitant]
     Active Substance: LISDEXAMFETAMINE DIMESYLATE
     Indication: ATTENTION DEFICIT/HYPERACTIVITY DISORDER
     Dosage: EVERY MORNING
     Route: 048
     Dates: start: 20160715
  7. LATUDA [Concomitant]
     Active Substance: LURASIDONE HYDROCHLORIDE
     Indication: PSYCHOTIC DISORDER
     Dosage: EVERY MORNING
     Route: 048
     Dates: start: 20140811
  8. LATUDA [Concomitant]
     Active Substance: LURASIDONE HYDROCHLORIDE
     Indication: PSYCHOTIC DISORDER
     Dosage: EVERY AFTERNOON OR EVENING
     Route: 048
     Dates: start: 20141124
  9. LATUDA [Concomitant]
     Active Substance: LURASIDONE HYDROCHLORIDE
     Indication: PSYCHOTIC DISORDER
     Dosage: EVERY AFTERNOON OR EVENING
     Route: 048
     Dates: start: 20160908
  10. LATUDA [Concomitant]
     Active Substance: LURASIDONE HYDROCHLORIDE
     Indication: PSYCHOTIC DISORDER
     Dosage: EVERY MORNING
     Route: 048
     Dates: end: 20140718
  11. SAPHRIS [Concomitant]
     Active Substance: ASENAPINE MALEATE
     Indication: AGITATION
     Dosage: EVERY NIGHT AT BEDTIME
     Route: 048
     Dates: start: 20151202

REACTIONS (3)
  - Syringe issue [Unknown]
  - Device malfunction [Unknown]
  - Product leakage [Unknown]

NARRATIVE: CASE EVENT DATE: 20160908
